FAERS Safety Report 8216018-7 (Version None)
Quarter: 2012Q1

REPORT INFORMATION
  Report Type: 
  Country: None (occurrence: None)
  Receive Date: 20120316
  Receipt Date: 20120309
  Transmission Date: 20120608
  Serious: Yes (Hospitalization, Other)
  Sender: FDA-Public Use
  Company Number: US-BAYER-2012-025003

PATIENT
  Age: 35 Year
  Sex: Female

DRUGS (21)
  1. YASMIN [Suspect]
     Indication: ACNE
     Dosage: UNK
     Dates: end: 20080625
  2. LORATADINE [Concomitant]
     Dosage: 5 MG, DAILY
     Route: 048
     Dates: start: 20110323
  3. RYDEX LIQUID [Concomitant]
     Dosage: UNK
     Dates: start: 20110103
  4. FLUTICASONE FUROATE [Concomitant]
     Dosage: 1 SPRAY NASAL TWICE A DAY
     Dates: start: 20110323
  5. ALPRAZOLAM [Concomitant]
     Dosage: 0.5 MG, DAILY
     Route: 048
     Dates: start: 20110323
  6. ALBUTEROL [Concomitant]
     Dosage: 1 PUFF INH EVERY 4 HOUR AS NEEDED
     Dates: start: 20110323
  7. SUMATRIPTAN [Concomitant]
     Dosage: 100 MG, PRN
     Route: 048
  8. BACLOFEN [Concomitant]
     Dosage: 10 MG, TID
     Route: 048
     Dates: start: 20110323
  9. PROPRANOLOL [Concomitant]
     Dosage: 80 MG, DAILY
     Dates: start: 20110323
  10. TRAZODONE HCL [Concomitant]
     Dosage: 150 MG, HS
     Route: 048
  11. LEVOTHYROXINE SODIUM [Concomitant]
     Dosage: 75 MCG/24HR,DAILY
     Route: 048
     Dates: start: 20110323
  12. POLYMYXIN B -TRIMETHOPRIM OPHTHA. [Concomitant]
     Dosage: INSTILL 1 TO 2 DROPS
     Route: 047
     Dates: start: 20110209
  13. DROSPIRENONE AND ETHINYL ESTRADIOL [Suspect]
     Indication: ACNE
     Dosage: UNK
     Dates: end: 20110224
  14. SUMATRIPTAN [Concomitant]
     Dosage: 6 MG, PRN
     Route: 058
     Dates: start: 20110307
  15. MONTELUKAST [Concomitant]
     Dosage: 10 MG, DAILY
     Route: 048
     Dates: start: 20110322
  16. FLUTICASONE PROPIONATE/SALMETEROL [Concomitant]
     Dosage: 1 PUFF INH TWICE
     Dates: start: 20110323
  17. HYDROCODONE BITARTRATE AND ACETAMINOPHEN [Concomitant]
     Dosage: 1 TABLET, Q4HR
     Route: 048
     Dates: start: 20110323
  18. TOPIRAMATE [Concomitant]
     Dosage: 100 MG, BID
     Route: 048
     Dates: start: 20110323
  19. SERTRALINE HYDROCHLORIDE [Concomitant]
     Dosage: 100 MG, DAILY
     Route: 048
     Dates: start: 20110323
  20. FENOFIBRATE [Concomitant]
     Dosage: 160 MG, DAILY
     Route: 048
     Dates: start: 20110322
  21. VITAMIN D [Concomitant]
     Dosage: 1000 UNIT, OW
     Route: 048
     Dates: start: 20110322

REACTIONS (3)
  - PULMONARY EMBOLISM [None]
  - DEEP VEIN THROMBOSIS [None]
  - CHOLECYSTECTOMY [None]
